FAERS Safety Report 14260000 (Version 1)
Quarter: 2017Q4

REPORT INFORMATION
  Report Type: Spontaneous
  Country: US (occurrence: US)
  Receive Date: 20171207
  Receipt Date: 20171207
  Transmission Date: 20180321
  Serious: Yes (Life-Threatening, Hospitalization)
  Sender: FDA-Public Use
  Company Number: US-NAPPMUNDI-GBR-2017-0051191

PATIENT
  Age: 55 Year
  Sex: Female

DRUGS (3)
  1. BUPIVACAINE. [Suspect]
     Active Substance: BUPIVACAINE
     Indication: PAIN
     Dosage: 40 MG/ML, UNK
     Route: 042
  2. CLONIDINE. [Suspect]
     Active Substance: CLONIDINE
     Indication: PAIN
     Dosage: 50 MCG/ML, UNK
     Route: 042
  3. HYDROMORPHONE HYDROCHLORIDE. [Suspect]
     Active Substance: HYDROMORPHONE HYDROCHLORIDE
     Indication: PAIN
     Dosage: 1 MG, UNK
     Route: 042

REACTIONS (3)
  - Hypertensive encephalopathy [Recovered/Resolved]
  - Incorrect dose administered [Recovered/Resolved]
  - Drug dispensing error [Recovered/Resolved]
